FAERS Safety Report 7613041-8 (Version None)
Quarter: 2011Q3

REPORT INFORMATION
  Report Type: 
  Country: None (occurrence: None)
  Receive Date: 20110708
  Receipt Date: 20101004
  Transmission Date: 20111222
  Serious: Yes (Other)
  Sender: FDA-Public Use
  Company Number: GER/UKI/10/0016315

PATIENT
  Age: 50 Year
  Sex: Male

DRUGS (3)
  1. RISPERIDONE [Suspect]
     Indication: SCHIZOPHRENIA
  2. TROPICAMIDE [Concomitant]
  3. PHENYLEPHRINE HCL [Concomitant]

REACTIONS (1)
  - FLOPPY IRIS SYNDROME [None]
